FAERS Safety Report 8159621-5 (Version None)
Quarter: 2012Q1

REPORT INFORMATION
  Report Type: 
  Country: None (occurrence: None)
  Receive Date: 20120223
  Receipt Date: 20120213
  Transmission Date: 20120608
  Serious: Yes (Hospitalization)
  Sender: FDA-Public Use
  Company Number: BE-B.I. PHARMACEUTICALS,INC./RIDGEFIELD-2012-BL-00069BL

PATIENT
  Sex: Female
  Weight: 58 kg

DRUGS (1)
  1. PRADAXA [Suspect]
     Indication: ATRIAL FIBRILLATION
     Dosage: 300 MG
     Route: 048
     Dates: start: 20111201, end: 20111231

REACTIONS (7)
  - ATRIAL FIBRILLATION [None]
  - HYPOTHYROIDISM [None]
  - URINARY RETENTION [None]
  - CARDIAC FAILURE [None]
  - SINUS BRADYCARDIA [None]
  - HYPERTENSION [None]
  - RENAL FAILURE [None]
